FAERS Safety Report 11019599 (Version 2)
Quarter: 2015Q2

REPORT INFORMATION
  Report Type: Spontaneous
  Country: US (occurrence: US)
  Receive Date: 20150412
  Receipt Date: 20150525
  Transmission Date: 20150821
  Serious: No
  Sender: FDA-Public Use
  Company Number: US-JNJFOC-20121008449

PATIENT

DRUGS (4)
  1. ALINIA [Suspect]
     Active Substance: NITAZOXANIDE
     Indication: HELICOBACTER GASTRITIS
     Dosage: WITH MEALS FOR 7 OR 10 DAYS
     Route: 065
  2. PRILOSEC [Suspect]
     Active Substance: OMEPRAZOLE MAGNESIUM
     Indication: HELICOBACTER GASTRITIS
     Dosage: BEFORE BREAKFAST FOR 7 OR 10 DAYS
     Route: 065
  3. LEVAQUIN [Suspect]
     Active Substance: LEVOFLOXACIN
     Indication: HELICOBACTER GASTRITIS
     Dosage: WITH BREAKFAST FOR 7 OR 10 DAYS
     Route: 065
  4. VIBRAMYCIN [Suspect]
     Active Substance: DOXYCYCLINE
     Indication: HELICOBACTER GASTRITIS
     Dosage: AT DINNER FOR 7 OR 10 DAYS
     Route: 065

REACTIONS (1)
  - Palpitations [Unknown]
